FAERS Safety Report 4471952-9 (Version None)
Quarter: 2004Q4

REPORT INFORMATION
  Report Type: 
  Country: None (occurrence: None)
  Receive Date: 20041007
  Receipt Date: 20040922
  Transmission Date: 20050328
  Serious: Yes (Hospitalization)
  Sender: FDA-Public Use
  Company Number: 2004-0007408

PATIENT
  Age: 39 Year
  Sex: Male
  Weight: 70 kg

DRUGS (3)
  1. VIREAD [Suspect]
     Indication: HIV INFECTION
     Dosage: 300 MG, 1 IN 1 D, ORAL
     Route: 048
     Dates: start: 20031103, end: 20040821
  2. 3TC (LAMIVUDINE) [Suspect]
     Indication: HIV INFECTION
     Dosage: 150 MG, 2 IN 1 D, ORAL
     Route: 048
     Dates: start: 20031103, end: 20040821
  3. STOCRIN (EFAVIRENZ) [Suspect]
     Indication: HIV INFECTION
     Dosage: 600 MG, 1 IN 1 D, ORAL
     Route: 048
     Dates: start: 20020516, end: 20040821

REACTIONS (1)
  - RHABDOMYOLYSIS [None]
